FAERS Safety Report 9997788 (Version 1)
Quarter: 2014Q1

REPORT INFORMATION
  Report Type: Spontaneous
  Country: US (occurrence: None)
  Receive Date: 20140225
  Receipt Date: 20140225
  Transmission Date: 20141002
  Serious: Yes (Other)
  Sender: FDA-Public Use
  Company Number: 2013-US-002610

PATIENT
  Sex: Female
  Weight: 52.6 kg

DRUGS (7)
  1. PRIALT (ZICONOTIDE ACETATE) INTRATHECAL INFUSION, UG/ML [Suspect]
     Indication: PAIN
     Route: 037
     Dates: end: 20131022
  2. PERCOCET (OXYCODONE HYDROCHLORIDE, PARACETAMOL) [Concomitant]
  3. XANAX (ALPRAZOLAM) [Concomitant]
  4. MORPHINE SULFATE (MORPHINE SULFATE) [Concomitant]
  5. LOTENSIN (BENAZEPRIL HYDROCHLORIDE) [Concomitant]
  6. ONDANSETRON (ONDANSETRON HYDROCHLORIDE) [Concomitant]
  7. PROMETHAZINE (PROMETHAZINE HYDROCHLORIDE) [Concomitant]

REACTIONS (3)
  - Hallucination, auditory [None]
  - Tearfulness [None]
  - Emotional distress [None]
